FAERS Safety Report 7521037-X (Version None)
Quarter: 2011Q2

REPORT INFORMATION
  Report Type: 
  Country: None (occurrence: None)
  Receive Date: 20110603
  Receipt Date: 20101202
  Transmission Date: 20111010
  Serious: Yes (Other)
  Sender: FDA-Public Use
  Company Number: JP-BAYER-200914700BYL

PATIENT
  Age: 70 Year
  Sex: Female
  Weight: 44 kg

DRUGS (10)
  1. LOXONIN [Concomitant]
     Indication: PAIN MANAGEMENT
     Dosage: 1 DF, QD
     Route: 048
     Dates: start: 20090511, end: 20091130
  2. OMEPRAZOLE [Concomitant]
     Indication: ABDOMINAL PAIN UPPER
     Dosage: 1 DF (DAILY DOSE), , ORAL
     Route: 048
     Dates: start: 20090727, end: 20090810
  3. NEXAVAR [Suspect]
     Indication: RENAL CELL CARCINOMA
     Dosage: 400 MG, BID
     Route: 048
     Dates: start: 20090410, end: 20090423
  4. MAGMITT [Concomitant]
     Dosage: 990 MG, QD
     Route: 048
     Dates: start: 20090416, end: 20090706
  5. LENDORMIN [Concomitant]
     Indication: INSOMNIA
     Dosage: 0.25 MG, QD
     Route: 048
     Dates: start: 20090423
  6. VOLTAREN-XR [Concomitant]
     Dosage: 2 DF (DAILY DOSE), , ORAL
     Route: 048
     Dates: start: 20090430, end: 20090510
  7. NEXAVAR [Suspect]
     Dosage: 400 MG, QD
     Route: 048
     Dates: start: 20090424, end: 20090810
  8. NEXAVAR [Suspect]
     Dosage: 400 MG, QD
     Route: 048
     Dates: start: 20090824, end: 20091113
  9. VESICARE [Concomitant]
     Indication: NOCTURIA
     Dosage: 5 MG, QD
     Route: 048
     Dates: start: 20090415, end: 20090829
  10. RHYTHMY [Concomitant]
     Indication: INSOMNIA
     Dosage: 2 MG, QD
     Route: 048
     Dates: start: 20090415

REACTIONS (7)
  - LIPASE INCREASED [None]
  - PHOTOSENSITIVITY REACTION [None]
  - PALMAR-PLANTAR ERYTHRODYSAESTHESIA SYNDROME [None]
  - BLOOD AMYLASE INCREASED [None]
  - HYPERTENSION [None]
  - ALOPECIA [None]
  - ARTHRITIS [None]
